FAERS Safety Report 17560724 (Version 1)
Quarter: 2020Q1

REPORT INFORMATION
  Report Type: Spontaneous
  Country: US (occurrence: US)
  Receive Date: 20200312
  Receipt Date: 20200312
  Transmission Date: 20200409
  Serious: Yes (Hospitalization)
  Sender: FDA-Public Use
  Company Number: None

PATIENT
  Age: 63 Year
  Sex: Male
  Weight: 67.6 kg

DRUGS (2)
  1. CYTARABINE (63878) [Suspect]
     Active Substance: CYTARABINE
     Dates: end: 20200120
  2. DAUNORUBICIN [Suspect]
     Active Substance: DAUNORUBICIN
     Dates: end: 20200116

REACTIONS (11)
  - Electrocardiogram T wave inversion [None]
  - Febrile neutropenia [None]
  - Loss of consciousness [None]
  - Malaise [None]
  - Pneumonia [None]
  - Diarrhoea [None]
  - Dyspnoea [None]
  - Asthenia [None]
  - Dizziness [None]
  - Sinus tachycardia [None]
  - Acute kidney injury [None]

NARRATIVE: CASE EVENT DATE: 20200227
